FAERS Safety Report 19421791 (Version 1)
Quarter: 2021Q2

REPORT INFORMATION
  Report Type: Spontaneous
  Country: US (occurrence: US)
  Receive Date: 20210615
  Receipt Date: 20210615
  Transmission Date: 20210717
  Serious: No
  Sender: FDA-Public Use
  Company Number: US-SA-2021SA196437

PATIENT
  Age: 70 Year
  Sex: Male

DRUGS (15)
  1. CERDELGA [Suspect]
     Active Substance: ELIGLUSTAT
     Indication: LIPIDOSIS
  2. VITAMINS NOS [Concomitant]
     Active Substance: VITAMINS
  3. CIALIS [Concomitant]
     Active Substance: TADALAFIL
  4. FLOMAX [Concomitant]
     Active Substance: TAMSULOSIN HYDROCHLORIDE
  5. LEVODOPA?CARBIDOPA [Concomitant]
     Active Substance: CARBIDOPA\LEVODOPA
     Indication: PARKINSON^S DISEASE
  6. NUPLAZID [Concomitant]
     Active Substance: PIMAVANSERIN TARTRATE
  7. OMEPRAZOLE. [Concomitant]
     Active Substance: OMEPRAZOLE
  8. TRAZODONE [Concomitant]
     Active Substance: TRAZODONE HYDROCHLORIDE
  9. GABAPENTIN. [Concomitant]
     Active Substance: GABAPENTIN
  10. CURCUMIN [Concomitant]
     Active Substance: CURCUMIN
  11. ESCITALOPRAM [Concomitant]
     Active Substance: ESCITALOPRAM OXALATE
  12. CERDELGA [Suspect]
     Active Substance: ELIGLUSTAT
     Indication: GAUCHER^S DISEASE
     Route: 048
     Dates: start: 20190921
  13. CERDELGA [Suspect]
     Active Substance: ELIGLUSTAT
     Indication: PARKINSON^S DISEASE
  14. VITAMIN B12 [Concomitant]
     Active Substance: CYANOCOBALAMIN
  15. OXYCODONE AND ACETAMINOPHEN [Concomitant]
     Active Substance: ACETAMINOPHEN\OXYCODONE HYDROCHLORIDE

REACTIONS (2)
  - Dyspepsia [Unknown]
  - Off label use [Unknown]
